FAERS Safety Report 4852832-3 (Version None)
Quarter: 2005Q4

REPORT INFORMATION
  Report Type: 
  Country: None (occurrence: None)
  Receive Date: 20051212
  Receipt Date: 20051212
  Transmission Date: 20060501
  Serious: Yes (Hospitalization)
  Sender: FDA-Public Use
  Company Number: None

PATIENT
  Sex: Male
  Weight: 62.1428 kg

DRUGS (2)
  1. DOCETAXEL [Suspect]
     Indication: SQUAMOUS CELL CARCINOMA
     Dosage: Q WEEKLY IV DRIP
     Route: 041
     Dates: start: 20051031, end: 20051128
  2. RADIATION THERAPY [Concomitant]

REACTIONS (3)
  - DEHYDRATION [None]
  - MALNUTRITION [None]
  - MUCOSAL INFLAMMATION [None]
